FAERS Safety Report 9669504 (Version 1)
Quarter: 2013Q4

REPORT INFORMATION
  Report Type: Spontaneous
  Country: FR (occurrence: FR)
  Receive Date: 20131105
  Receipt Date: 20131105
  Transmission Date: 20140711
  Serious: Yes (Hospitalization)
  Sender: FDA-Public Use
  Company Number: FR-ASTRAZENECA-2013SE79116

PATIENT
  Age: 50 Year
  Sex: Male

DRUGS (3)
  1. ZOMIG [Suspect]
     Indication: MIGRAINE
     Route: 048
  2. ZOMIG [Suspect]
     Indication: MIGRAINE
     Route: 048
  3. PROPRANOLOL [Concomitant]
     Dates: end: 201106

REACTIONS (2)
  - Medication overuse headache [Recovering/Resolving]
  - Intentional drug misuse [Recovering/Resolving]
